FAERS Safety Report 13903690 (Version 2)
Quarter: 2017Q3

REPORT INFORMATION
  Report Type: Spontaneous
  Country: FR (occurrence: FR)
  Receive Date: 20170824
  Receipt Date: 20170825
  Transmission Date: 20171127
  Serious: Yes (Other)
  Sender: FDA-Public Use
  Company Number: PHHY2017FR122459

PATIENT
  Age: 10 Month
  Sex: Female
  Weight: 8 kg

DRUGS (1)
  1. TOBREX [Suspect]
     Active Substance: TOBRAMYCIN
     Indication: CONJUNCTIVITIS
     Dosage: 1 GTT (SINGLE INTAKE OF 1 DROP IN BOTH EYES)
     Route: 047
     Dates: start: 20170717, end: 20170717

REACTIONS (2)
  - Eye irritation [Unknown]
  - Eczema [Unknown]

NARRATIVE: CASE EVENT DATE: 20170717
